FAERS Safety Report 15517550 (Version 3)
Quarter: 2018Q4

REPORT INFORMATION
  Report Type: Spontaneous
  Country: GB (occurrence: GB)
  Receive Date: 20181017
  Receipt Date: 20181205
  Transmission Date: 20190205
  Serious: Yes (Other)
  Sender: FDA-Public Use
  Company Number: PHHY2018GB124340

PATIENT
  Sex: Female

DRUGS (1)
  1. COSENTYX [Suspect]
     Active Substance: SECUKINUMAB
     Indication: PRODUCT USED FOR UNKNOWN INDICATION
     Dosage: 300 MG, UNK
     Route: 058

REACTIONS (6)
  - Joint injury [Unknown]
  - Drug ineffective [Unknown]
  - Depressed level of consciousness [Unknown]
  - Spinal cord injury [Unknown]
  - Infection [Unknown]
  - Fatigue [Unknown]
